FAERS Safety Report 22200954 (Version 6)
Quarter: 2024Q1

REPORT INFORMATION
  Report Type: Spontaneous
  Country: JP (occurrence: None)
  Receive Date: 20230412
  Receipt Date: 20240101
  Transmission Date: 20240409
  Serious: Yes (Other)
  Sender: FDA-Public Use
  Company Number: 2023A068055

PATIENT
  Age: 46 Year
  Sex: Female
  Weight: 55 kg

DRUGS (22)
  1. TEZSPIRE [Suspect]
     Active Substance: TEZEPELUMAB-EKKO
     Indication: Asthma
     Dosage: UNKNOWN
     Route: 058
     Dates: start: 20221205, end: 20230104
  2. TEZSPIRE [Suspect]
     Active Substance: TEZEPELUMAB-EKKO
     Indication: Asthma
     Dosage: UNKNOWN
     Route: 058
     Dates: start: 20230315, end: 20230412
  3. BREZTRI [Suspect]
     Active Substance: BUDESONIDE\FORMOTEROL\GLYCOPYRROLATE
     Indication: Asthma-chronic obstructive pulmonary disease overlap syndrome
     Route: 055
     Dates: start: 20201106
  4. SYMBICORT [Suspect]
     Active Substance: BUDESONIDE\FORMOTEROL FUMARATE DIHYDRATE
     Indication: Asthma
     Dosage: 30 DOSE
     Route: 055
     Dates: start: 20190304
  5. DUPIXENT [Suspect]
     Active Substance: DUPILUMAB
     Indication: Asthma
     Dates: start: 20191101, end: 20220502
  6. DUPIXENT [Suspect]
     Active Substance: DUPILUMAB
     Indication: Asthma
     Dates: start: 202210, end: 20221205
  7. MONTELUKAST [Suspect]
     Active Substance: MONTELUKAST SODIUM
     Indication: Asthma
     Route: 048
     Dates: start: 20190204
  8. EPINASTINE [Suspect]
     Active Substance: EPINASTINE
     Indication: Asthma
     Route: 048
     Dates: start: 20190408, end: 20230824
  9. HUSCODE [Suspect]
     Active Substance: CHLORPHENIRAMINE MALEATE\DIHYDROCODEINE PHOSPHATE\METHYLEPHEDRINE HYDROCHLORIDE, DL-
     Indication: Asthma
     Route: 048
     Dates: start: 20211201
  10. CARBOCYSTEINE [Suspect]
     Active Substance: CARBOCYSTEINE
     Indication: Asthma
     Route: 048
     Dates: start: 20190925
  11. VONOPRAZAN FUMARATE [Suspect]
     Active Substance: VONOPRAZAN FUMARATE
     Indication: Gastrooesophageal reflux disease
     Route: 048
     Dates: start: 20190218
  12. XYZAL [Suspect]
     Active Substance: LEVOCETIRIZINE DIHYDROCHLORIDE
     Indication: Asthma
     Route: 048
     Dates: start: 20230805
  13. DIENOGEST [Concomitant]
     Active Substance: DIENOGEST
     Indication: Dysmenorrhoea
     Route: 048
  14. NITROGLYCERIN [Concomitant]
     Active Substance: NITROGLYCERIN
  15. FASENRA [Concomitant]
     Active Substance: BENRALIZUMAB
     Indication: Asthma
     Route: 058
     Dates: start: 20220502
  16. NEUROTROPIN [Concomitant]
     Active Substance: NEUROTROPIN
     Indication: Periarthritis
     Route: 048
  17. DULOXETINE [Concomitant]
     Active Substance: DULOXETINE
     Indication: Periarthritis
     Route: 048
  18. TSUMURA SHAKUYAKUKANZOTO EXTRACT [Concomitant]
     Indication: Muscle spasms
     Route: 048
     Dates: start: 20190607
  19. FLUOROMETHOLONE [Concomitant]
     Active Substance: FLUOROMETHOLONE
     Indication: Conjunctivitis allergic
     Route: 047
     Dates: start: 20220925
  20. ALESION [Concomitant]
     Active Substance: EPINASTINE HYDROCHLORIDE
     Indication: Conjunctivitis allergic
     Route: 047
     Dates: start: 20200722
  21. MIYA-BM [Concomitant]
     Active Substance: CLOSTRIDIUM BUTYRICUM SPORES STRAIN M-55
     Indication: Gastroenteritis
     Route: 048
  22. MAGNESIUM OXIDE [Concomitant]
     Active Substance: MAGNESIUM OXIDE
     Indication: Gastroenteritis
     Route: 048

REACTIONS (21)
  - Chest pain [Recovered/Resolved]
  - Sinusitis [Unknown]
  - Pulpitis dental [Unknown]
  - Gingivitis [Unknown]
  - Nausea [Recovered/Resolved]
  - Headache [Recovered/Resolved]
  - Chest discomfort [Recovering/Resolving]
  - Chills [Recovering/Resolving]
  - Blood pressure increased [Recovered/Resolved]
  - Ocular hyperaemia [Recovering/Resolving]
  - Asthma [Recovering/Resolving]
  - Rhinalgia [Not Recovered/Not Resolved]
  - Oropharyngeal discomfort [Not Recovered/Not Resolved]
  - Palpitations [Recovering/Resolving]
  - Nasal pruritus [Unknown]
  - Furuncle [Unknown]
  - Hypersensitivity [Unknown]
  - Dyspnoea [Unknown]
  - Aspartate aminotransferase increased [Recovered/Resolved]
  - Alanine aminotransferase increased [Recovered/Resolved]
  - Gamma-glutamyltransferase increased [Recovered/Resolved]

NARRATIVE: CASE EVENT DATE: 20221205
